FAERS Safety Report 15604917 (Version 1)
Quarter: 2018Q4

REPORT INFORMATION
  Report Type: Report from Study
  Country: None (occurrence: SE)
  Receive Date: 20181111
  Receipt Date: 20181111
  Transmission Date: 20190205
  Serious: Yes (Hospitalization)
  Sender: FDA-Public Use
  Company Number: SE-ABBVIE-18S-150-2544930-00

PATIENT
  Age: 79 Year
  Sex: Male

DRUGS (2)
  1. DUODOPA [Suspect]
     Active Substance: CARBIDOPA\LEVODOPA
     Indication: PARKINSON^S DISEASE
     Route: 050
     Dates: start: 20120909
  2. DUODOPA [Suspect]
     Active Substance: CARBIDOPA\LEVODOPA
     Route: 050
     Dates: start: 20121003

REACTIONS (2)
  - Micturition urgency [Unknown]
  - Device breakage [Unknown]

NARRATIVE: CASE EVENT DATE: 20181103
